FAERS Safety Report 8052703-8 (Version None)
Quarter: 2012Q1

REPORT INFORMATION
  Report Type: 
  Country: None (occurrence: None)
  Receive Date: 20120118
  Receipt Date: 20120118
  Transmission Date: 20120608
  Serious: No
  Sender: FDA-Public Use
  Company Number: None

PATIENT
  Sex: Male
  Weight: 76.203 kg

DRUGS (1)
  1. ALFUZOSIN HCL [Suspect]
     Indication: PROSTATOMEGALY
     Dosage: 10MG
     Route: 048
     Dates: start: 20120114, end: 20120114

REACTIONS (4)
  - DIZZINESS [None]
  - DRY MOUTH [None]
  - MYALGIA [None]
  - PRODUCT SUBSTITUTION ISSUE [None]
